FAERS Safety Report 10262967 (Version 2)
Quarter: 2014Q2

REPORT INFORMATION
  Report Type: Report from Study
  Country: US (occurrence: US)
  Receive Date: 20140626
  Receipt Date: 20140626
  Transmission Date: 20141212
  Serious: Yes (Other)
  Sender: FDA-Public Use
  Company Number: US-MYLANLABS-2013S1024319

PATIENT
  Age: 42 Year
  Sex: Female
  Weight: 95.62 kg

DRUGS (8)
  1. CLOZAPINE TABLETS [Suspect]
     Indication: SCHIZOAFFECTIVE DISORDER
     Dosage: 300MG QAM, 400MG HS
     Route: 048
     Dates: end: 20131024
  2. PRISTIQ [Concomitant]
  3. FLUPHENAZINE [Concomitant]
  4. LORAZEPAM [Concomitant]
  5. DIVALPROEX [Concomitant]
  6. SIMVASTATIN [Concomitant]
  7. OMEPRAZOLE [Concomitant]
  8. OXYBUTYNIN [Concomitant]

REACTIONS (2)
  - Granulocytopenia [Not Recovered/Not Resolved]
  - White blood cell count decreased [Not Recovered/Not Resolved]
